FAERS Safety Report 6084757-2 (Version None)
Quarter: 2009Q1

REPORT INFORMATION
  Report Type: 
  Country: None (occurrence: None)
  Receive Date: 20090217
  Receipt Date: 20090203
  Transmission Date: 20090719
  Serious: Yes (Hospitalization, Other)
  Sender: FDA-Public Use
  Company Number: A-US2007-14665

PATIENT
  Age: 71 Year
  Sex: Female

DRUGS (13)
  1. TRACLEER [Suspect]
     Indication: PULMONARY ARTERIAL HYPERTENSION
     Dosage: 125 MG, BID, ORAL; 62.5 MG, BID, ORAL; 125 MG, BID, ORAL
     Route: 048
     Dates: start: 20060401, end: 20060901
  2. TRACLEER [Suspect]
     Indication: PULMONARY ARTERIAL HYPERTENSION
     Dosage: 125 MG, BID, ORAL; 62.5 MG, BID, ORAL; 125 MG, BID, ORAL
     Route: 048
     Dates: start: 20060901, end: 20081203
  3. TRACLEER [Suspect]
     Indication: PULMONARY ARTERIAL HYPERTENSION
     Dosage: 125 MG, BID, ORAL; 62.5 MG, BID, ORAL; 125 MG, BID, ORAL
     Route: 048
     Dates: start: 20090101, end: 20090123
  4. LIPITOR [Suspect]
     Dosage: ORAL;
     Route: 048
     Dates: end: 20081203
  5. LIPITOR [Suspect]
     Dosage: ORAL;
     Route: 048
     Dates: start: 20090101, end: 20090123
  6. LANSOPRAZOLE [Concomitant]
  7. BUMETANIDE [Concomitant]
  8. GLIMEPIRIDE [Concomitant]
  9. CARVEDILOL [Concomitant]
  10. ASPIRIN [Concomitant]
  11. NORTRIPTYLINE HCL [Concomitant]
  12. FLUTICASONE (FLUTICASONE PROPIONATE) [Concomitant]
  13. FORMOTEROL (FORMOTEROL FUMARATE) [Concomitant]

REACTIONS (10)
  - ACUTE HEPATIC FAILURE [None]
  - ASTHMA [None]
  - BRONCHOSPASM [None]
  - CHOLELITHIASIS [None]
  - HYPERGLYCAEMIA [None]
  - HYPOTENSION [None]
  - LUNG DISORDER [None]
  - NASAL CONGESTION [None]
  - RENAL FAILURE ACUTE [None]
  - STAPHYLOCOCCAL INFECTION [None]
